FAERS Safety Report 21475264 (Version 4)
Quarter: 2023Q1

REPORT INFORMATION
  Report Type: Spontaneous
  Country: US (occurrence: US)
  Receive Date: 20221019
  Receipt Date: 20230215
  Transmission Date: 20230418
  Serious: Yes (Other)
  Sender: FDA-Public Use
  Company Number: US-BEH-2022150907

PATIENT
  Age: 5 Year
  Sex: Male

DRUGS (20)
  1. IDELVION [Suspect]
     Active Substance: COAGULATION FACTOR IX RECOMBINANT HUMAN
     Indication: Factor IX deficiency
     Dosage: 1314 INTERNATIONAL UNIT, QOW
     Route: 042
     Dates: start: 20190729
  2. IDELVION [Suspect]
     Active Substance: COAGULATION FACTOR IX RECOMBINANT HUMAN
     Indication: Factor IX deficiency
     Dosage: 1314 INTERNATIONAL UNIT, QOW
     Route: 042
     Dates: start: 20190729
  3. IDELVION [Suspect]
     Active Substance: COAGULATION FACTOR IX RECOMBINANT HUMAN
     Indication: Prophylaxis
     Dosage: 1314 INTERNATIONAL UNIT, PRN
     Route: 042
     Dates: start: 20190729
  4. IDELVION [Suspect]
     Active Substance: COAGULATION FACTOR IX RECOMBINANT HUMAN
     Indication: Prophylaxis
     Dosage: 1314 INTERNATIONAL UNIT, PRN
     Route: 042
     Dates: start: 20190729
  5. IDELVION [Suspect]
     Active Substance: COAGULATION FACTOR IX RECOMBINANT HUMAN
     Dosage: 1 DOSE, PRN
     Route: 042
     Dates: start: 20221006
  6. IDELVION [Suspect]
     Active Substance: COAGULATION FACTOR IX RECOMBINANT HUMAN
     Dosage: 1 DOSE, PRN
     Route: 042
     Dates: start: 20221006
  7. IDELVION [Suspect]
     Active Substance: COAGULATION FACTOR IX RECOMBINANT HUMAN
     Dosage: 1314 INTERNATIONAL UNIT, QOW
     Route: 042
     Dates: start: 20211028
  8. IDELVION [Suspect]
     Active Substance: COAGULATION FACTOR IX RECOMBINANT HUMAN
     Dosage: 1314 INTERNATIONAL UNIT, QOW
     Route: 042
     Dates: start: 20211028
  9. IDELVION [Suspect]
     Active Substance: COAGULATION FACTOR IX RECOMBINANT HUMAN
     Dosage: 1314 INTERNATIONAL UNIT, PRN
     Route: 042
     Dates: start: 20211028
  10. IDELVION [Suspect]
     Active Substance: COAGULATION FACTOR IX RECOMBINANT HUMAN
     Dosage: 1314 INTERNATIONAL UNIT, PRN
     Route: 042
     Dates: start: 20211028
  11. IDELVION [Suspect]
     Active Substance: COAGULATION FACTOR IX RECOMBINANT HUMAN
     Dosage: 267 INTERNATIONAL UNIT, QOW
     Route: 042
     Dates: start: 20221026
  12. IDELVION [Suspect]
     Active Substance: COAGULATION FACTOR IX RECOMBINANT HUMAN
     Dosage: 267 INTERNATIONAL UNIT, QOW
     Route: 042
     Dates: start: 20221026
  13. IDELVION [Suspect]
     Active Substance: COAGULATION FACTOR IX RECOMBINANT HUMAN
     Dosage: 1022 INTERNATIONAL UNIT, QOW
     Route: 042
     Dates: start: 20221026
  14. IDELVION [Suspect]
     Active Substance: COAGULATION FACTOR IX RECOMBINANT HUMAN
     Dosage: 1022 INTERNATIONAL UNIT, QOW
     Route: 042
     Dates: start: 20221026
  15. IDELVION [Suspect]
     Active Substance: COAGULATION FACTOR IX RECOMBINANT HUMAN
     Dosage: 1 DOSE, PRN
     Route: 042
     Dates: start: 2022
  16. IDELVION [Suspect]
     Active Substance: COAGULATION FACTOR IX RECOMBINANT HUMAN
     Dosage: 1 DOSE, PRN
     Route: 042
     Dates: start: 2022
  17. IDELVION [Suspect]
     Active Substance: COAGULATION FACTOR IX RECOMBINANT HUMAN
     Dosage: 1360 INTERNATIONAL UNIT, QOW
     Route: 042
     Dates: start: 202210
  18. IDELVION [Suspect]
     Active Substance: COAGULATION FACTOR IX RECOMBINANT HUMAN
     Dosage: 1360 INTERNATIONAL UNIT, QOW
     Route: 042
     Dates: start: 202210
  19. IDELVION [Suspect]
     Active Substance: COAGULATION FACTOR IX RECOMBINANT HUMAN
     Dosage: 1 DOSE, PRN
     Route: 042
     Dates: start: 202301
  20. IDELVION [Suspect]
     Active Substance: COAGULATION FACTOR IX RECOMBINANT HUMAN
     Dosage: 1 DOSE, PRN
     Route: 042
     Dates: start: 202301

REACTIONS (13)
  - Traumatic haemorrhage [Recovered/Resolved]
  - Injury [Recovered/Resolved]
  - Fall [Unknown]
  - Fall [Unknown]
  - Traumatic haematoma [Recovering/Resolving]
  - Traumatic haemorrhage [Recovering/Resolving]
  - Traumatic haematoma [Unknown]
  - Injury [Unknown]
  - Haemorrhage [Recovered/Resolved]
  - Haematoma [Unknown]
  - Head injury [Unknown]
  - Wound [Unknown]
  - Traumatic haemorrhage [Recovered/Resolved]

NARRATIVE: CASE EVENT DATE: 20220101
